FAERS Safety Report 8436121-6 (Version None)
Quarter: 2012Q2

REPORT INFORMATION
  Report Type: 
  Country: None (occurrence: None)
  Receive Date: 20120614
  Receipt Date: 20120611
  Transmission Date: 20120825
  Serious: Yes (Other)
  Sender: FDA-Public Use
  Company Number: NO-ROCHE-1077112

PATIENT
  Age: 34 Year
  Sex: Female

DRUGS (1)
  1. AVASTIN [Suspect]
     Indication: COLON CANCER
     Route: 042
     Dates: start: 20120611, end: 20120611

REACTIONS (4)
  - MALAISE [None]
  - PRURITUS [None]
  - RASH [None]
  - CHEST PAIN [None]
